FAERS Safety Report 4872733-4 (Version None)
Quarter: 2006Q1

REPORT INFORMATION
  Report Type: 
  Country: None (occurrence: None)
  Receive Date: 20060103
  Receipt Date: 20051219
  Transmission Date: 20060701
  Serious: Yes (Other)
  Sender: FDA-Public Use
  Company Number: 200510691BYL

PATIENT
  Age: 65 Year
  Sex: Female

DRUGS (3)
  1. ASPIRIN [Suspect]
     Indication: MYOCARDIAL ISCHAEMIA
     Dosage: 100 MG, QD, ORAL
     Route: 048
  2. FAMOTIDINE [Suspect]
     Dosage: ORAL
     Route: 048
  3. NIFEDIPINE [Suspect]
     Dosage: ORAL
     Route: 048

REACTIONS (1)
  - INTERSTITIAL LUNG DISEASE [None]
